FAERS Safety Report 10132418 (Version 2)
Quarter: 2014Q3

REPORT INFORMATION
  Report Type: Spontaneous
  Country: US (occurrence: US)
  Receive Date: 20140428
  Receipt Date: 20140922
  Transmission Date: 20150326
  Serious: Yes (Hospitalization)
  Sender: FDA-Public Use
  Company Number: US-BAYER-2014-058822

PATIENT
  Age: 22 Year
  Sex: Female
  Weight: 82 kg

DRUGS (8)
  1. ADVEL [Concomitant]
     Dosage: UNK, PRN
  2. SUMATRIPTAN SUCCINATE. [Concomitant]
     Active Substance: SUMATRIPTAN SUCCINATE
     Dosage: 50 MG, UNK
  3. YAZ [Suspect]
     Active Substance: DROSPIRENONE\ETHINYL ESTRADIOL
     Indication: ACNE
  4. DORYX [Concomitant]
     Active Substance: DOXYCYCLINE HYCLATE
     Indication: ACNE
     Dosage: 150 MG, QD
     Dates: start: 201203, end: 20120730
  5. YAZ [Suspect]
     Active Substance: DROSPIRENONE\ETHINYL ESTRADIOL
     Indication: CONTRACEPTION
     Dosage: UNK
     Dates: start: 200805, end: 20120730
  6. IMITREX [Concomitant]
     Active Substance: SUMATRIPTAN\SUMATRIPTAN SUCCINATE
     Indication: MIGRAINE
     Dosage: 50 MG, UNK
     Dates: start: 20120727, end: 20120729
  7. EPIDUO [Concomitant]
     Active Substance: ADAPALENE\BENZOYL PEROXIDE
  8. YAZ [Suspect]
     Active Substance: DROSPIRENONE\ETHINYL ESTRADIOL
     Indication: PREMENSTRUAL SYNDROME

REACTIONS (8)
  - Thrombosis [None]
  - Emotional distress [None]
  - Cerebrovascular accident [None]
  - Injury [None]
  - Anxiety [None]
  - Pain [None]
  - Anhedonia [None]
  - Thalamic infarction [None]

NARRATIVE: CASE EVENT DATE: 20120730
